FAERS Safety Report 17734365 (Version 1)
Quarter: 2020Q2

REPORT INFORMATION
  Report Type: Report from Study
  Country: CA (occurrence: CA)
  Receive Date: 20200501
  Receipt Date: 20200501
  Transmission Date: 20200714
  Serious: Yes (Other)
  Sender: FDA-Public Use
  Company Number: CA-GLAXOSMITHKLINE-CA2020AMR006142

PATIENT
  Age: 28 Year
  Sex: Female

DRUGS (1)
  1. MEPOLIZUMAB [Suspect]
     Active Substance: MEPOLIZUMAB
     Indication: ASTHMA
     Dosage: 100 MG, Z (ONTHLY)
     Route: 042
     Dates: start: 20190102

REACTIONS (3)
  - Disease recurrence [Unknown]
  - Pseudomonas infection [Unknown]
  - Ear infection [Unknown]

NARRATIVE: CASE EVENT DATE: 201912
